FAERS Safety Report 7625855-9 (Version None)
Quarter: 2011Q3

REPORT INFORMATION
  Report Type: 
  Country: None (occurrence: None)
  Receive Date: 20110721
  Receipt Date: 20110711
  Transmission Date: 20111222
  Serious: Yes (Death)
  Sender: FDA-Public Use
  Company Number: RU-JNJFOC-20110705713

PATIENT
  Age: 77 Year
  Sex: Female

DRUGS (4)
  1. TRANEXAMIC ACID [Concomitant]
     Dates: start: 20110628, end: 20110628
  2. XARELTO [Suspect]
     Indication: HIP ARTHROPLASTY
     Route: 048
     Dates: start: 20110628, end: 20110630
  3. INSULIN [Concomitant]
  4. XARELTO [Suspect]
     Indication: EMBOLISM
     Route: 048
     Dates: start: 20110628, end: 20110630

REACTIONS (1)
  - EMBOLISM [None]
